FAERS Safety Report 15170455 (Version 2)
Quarter: 2018Q3

REPORT INFORMATION
  Report Type: Spontaneous
  Country: JP (occurrence: JP)
  Receive Date: 20180720
  Receipt Date: 20180724
  Transmission Date: 20181010
  Serious: Yes (Other)
  Sender: FDA-Public Use
  Company Number: JP-ALVOGEN-2018-ALVOGEN-096808

PATIENT

DRUGS (1)
  1. TENORMIN [Suspect]
     Active Substance: ATENOLOL
     Indication: ATRIAL FIBRILLATION
     Dosage: DOSE UNKNOWN
     Route: 048

REACTIONS (5)
  - Cardiac failure [Unknown]
  - Sleep disorder [Unknown]
  - Brain natriuretic peptide increased [Unknown]
  - Cardiomegaly [Unknown]
  - Apnoea [Unknown]
